FAERS Safety Report 14967109 (Version 1)
Quarter: 2018Q2

REPORT INFORMATION
  Report Type: Spontaneous
  Country: KR (occurrence: KR)
  Receive Date: 20180604
  Receipt Date: 20180604
  Transmission Date: 20180711
  Serious: Yes (Other)
  Sender: FDA-Public Use
  Company Number: KR-CHEPLA-C20180223_02

PATIENT
  Age: 17 Year
  Sex: Male

DRUGS (1)
  1. ATRA [Suspect]
     Active Substance: TRETINOIN
     Indication: ACUTE PROMYELOCYTIC LEUKAEMIA
     Dosage: DUE TO RETINOIC ACID SYNDROME ATRA WAS DISCONTINUED AND LATER RESUMED
     Route: 065

REACTIONS (3)
  - Retinal haemorrhage [Unknown]
  - Intracranial pressure increased [Unknown]
  - Acute promyelocytic leukaemia differentiation syndrome [Unknown]
